FAERS Safety Report 5466919-8 (Version None)
Quarter: 2007Q3

REPORT INFORMATION
  Report Type: 
  Country: None (occurrence: None)
  Receive Date: 20070921
  Receipt Date: 20070921
  Transmission Date: 20080115
  Serious: Yes (Life-Threatening, Hospitalization)
  Sender: FDA-Public Use
  Company Number: None

PATIENT
  Sex: Male
  Weight: 79.3795 kg

DRUGS (1)
  1. NIACIN [Suspect]
     Dosage: ONE DAILY PO
     Route: 048

REACTIONS (3)
  - BLOOD PRESSURE DECREASED [None]
  - CONVULSION [None]
  - PULSE PRESSURE DECREASED [None]
